FAERS Safety Report 6267894-9 (Version None)
Quarter: 2009Q3

REPORT INFORMATION
  Report Type: 
  Country: None (occurrence: None)
  Receive Date: 20090714
  Receipt Date: 20090713
  Transmission Date: 20100115
  Serious: Yes (Life-Threatening)
  Sender: FDA-Public Use
  Company Number: US-ASTRAZENECA-2009UW19464

PATIENT
  Sex: Female

DRUGS (2)
  1. SEROQUEL [Suspect]
     Dosage: TOOK 25 PILLS
     Route: 048
  2. SEVEN DIFFERENT PRESCRIPTIONS [Concomitant]

REACTIONS (2)
  - HOMICIDE [None]
  - INTENTIONAL OVERDOSE [None]
